FAERS Safety Report 10518530 (Version 1)
Quarter: 2014Q4

REPORT INFORMATION
  Report Type: Report from Study
  Country: CA (occurrence: CA)
  Receive Date: 20141015
  Receipt Date: 20141015
  Transmission Date: 20150528
  Serious: Yes (Hospitalization)
  Sender: FDA-Public Use
  Company Number: CA-SA-2014SA137030

PATIENT
  Age: 67 Year
  Sex: Female
  Weight: 59.7 kg

DRUGS (7)
  1. OXALIPLATIN. [Suspect]
     Active Substance: OXALIPLATIN
     Indication: SUPRAVENTRICULAR TACHYCARDIA
     Route: 042
     Dates: start: 20140805, end: 20140916
  2. IRINOTECAN [Suspect]
     Active Substance: IRINOTECAN
     Route: 042
     Dates: start: 20140805, end: 20140916
  3. PANTOPRAZOLE [Concomitant]
     Active Substance: PANTOPRAZOLE SODIUM
     Indication: DYSPEPSIA
     Route: 048
     Dates: start: 2014
  4. 5-FU [Suspect]
     Active Substance: FLUOROURACIL
     Route: 042
     Dates: start: 20140805, end: 20140916
  5. LEUCOVORIN [Suspect]
     Active Substance: LEUCOVORIN
     Route: 042
     Dates: start: 20140805, end: 20140916
  6. CREON [Concomitant]
     Active Substance: PANCRELIPASE AMYLASE\PANCRELIPASE LIPASE\PANCRELIPASE PROTEASE
     Indication: ENZYME SUPPLEMENTATION
     Route: 048
     Dates: start: 2014
  7. DILTIAZEM [Concomitant]
     Active Substance: DILTIAZEM
     Indication: SUPRAVENTRICULAR TACHYCARDIA
     Route: 048
     Dates: start: 2012

REACTIONS (2)
  - Supraventricular tachycardia [Recovered/Resolved with Sequelae]
  - Dehydration [Recovered/Resolved with Sequelae]

NARRATIVE: CASE EVENT DATE: 20140923
